FAERS Safety Report 18364326 (Version 9)
Quarter: 2021Q3

REPORT INFORMATION
  Report Type: Spontaneous
  Country: GB (occurrence: GB)
  Receive Date: 20201009
  Receipt Date: 20210803
  Transmission Date: 20211014
  Serious: Yes (Other)
  Sender: FDA-Public Use
  Company Number: GB-GW PHARMA-202009GBGW03332

PATIENT

DRUGS (18)
  1. SODIUM VALPROATE [Interacting]
     Active Substance: VALPROATE SODIUM
     Dosage: 800 MILLIGRAM, QD
     Route: 048
  2. EPIDYOLEX [Suspect]
     Active Substance: CANNABIDIOL
     Indication: LENNOX-GASTAUT SYNDROME
     Dosage: 2.55 MG/KG/DAY, 220 MILLIGRAM, QD
     Route: 048
     Dates: start: 20200326, end: 202006
  3. CLOBAZAM. [Interacting]
     Active Substance: CLOBAZAM
     Dosage: 15 MILLIGRAM, QD (5MG/10MG)
     Route: 065
     Dates: start: 202006, end: 202006
  4. CLOBAZAM. [Interacting]
     Active Substance: CLOBAZAM
     Dosage: 5 MILLIGRAM, BID
     Route: 065
     Dates: start: 202006, end: 202006
  5. SODIUM VALPROATE [Interacting]
     Active Substance: VALPROATE SODIUM
     Indication: LENNOX-GASTAUT SYNDROME
     Dosage: 1000 MILLIGRAM, QD
     Route: 048
     Dates: start: 1992
  6. LAMOTRIGINE. [Concomitant]
     Active Substance: LAMOTRIGINE
     Dosage: 350 MILLIGRAM, QD (150MG/200MG)
     Route: 065
     Dates: start: 202007
  7. EPIDYOLEX [Interacting]
     Active Substance: CANNABIDIOL
     Dosage: 2.09 MG/KG/DAY, 180 MILLIGRAM, QD
     Route: 048
     Dates: start: 202006, end: 202008
  8. CLOBAZAM. [Interacting]
     Active Substance: CLOBAZAM
     Dosage: UNK (REDUCED DOSE)
     Route: 065
     Dates: start: 202004, end: 202005
  9. CLOBAZAM. [Interacting]
     Active Substance: CLOBAZAM
     Dosage: 10 MILLIGRAM, QD (NOCTE)
     Route: 065
     Dates: start: 202008
  10. SODIUM VALPROATE [Interacting]
     Active Substance: VALPROATE SODIUM
     Dosage: 800 MILLIGRAM, QD
     Route: 048
  11. CLOBAZAM. [Interacting]
     Active Substance: CLOBAZAM
     Dosage: UNK (REDUCED DOSE)
     Route: 065
     Dates: start: 202005, end: 202006
  12. CLOBAZAM. [Interacting]
     Active Substance: CLOBAZAM
     Dosage: 5 MILLIGRAM, QD
     Route: 065
     Dates: start: 202006, end: 202006
  13. EPIDYOLEX [Interacting]
     Active Substance: CANNABIDIOL
     Dosage: 2.55 MG/KG/DAY, 220 MILLIGRAM, QD
     Route: 048
     Dates: start: 202008
  14. CLOBAZAM. [Interacting]
     Active Substance: CLOBAZAM
     Dosage: 10 MILLIGRAM, QD (NOCTE)
     Route: 065
     Dates: start: 202006, end: 202007
  15. SODIUM VALPROATE [Interacting]
     Active Substance: VALPROATE SODIUM
     Dosage: 1000 MILLIGRAM, BID
     Route: 048
     Dates: start: 1992
  16. LAMOTRIGINE. [Concomitant]
     Active Substance: LAMOTRIGINE
     Indication: PRODUCT USED FOR UNKNOWN INDICATION
     Dosage: 200 MILLIGRAM, QD
     Route: 065
     Dates: end: 2020
  17. CLOBAZAM. [Interacting]
     Active Substance: CLOBAZAM
     Indication: ILL-DEFINED DISORDER
     Dosage: 45 MILLIGRAM, QD  (20MG/25MG)
     Route: 065
  18. CLOBAZAM. [Interacting]
     Active Substance: CLOBAZAM
     Dosage: 7.5 MILLIGRAM, QD (NOCTE)
     Route: 065
     Dates: start: 202007, end: 202008

REACTIONS (10)
  - Hypersomnia [Recovered/Resolved]
  - Partial seizures [Recovered/Resolved]
  - Toxicity to various agents [Recovered/Resolved]
  - Vomiting [Recovered/Resolved]
  - Overdose [Unknown]
  - Drug abuse [Unknown]
  - Drug interaction [Recovered/Resolved]
  - Gait disturbance [Recovered/Resolved]
  - Fatigue [Recovered/Resolved]
  - Alopecia [Recovered/Resolved]

NARRATIVE: CASE EVENT DATE: 202004
